FAERS Safety Report 9354529 (Version 1)
Quarter: 2013Q2

REPORT INFORMATION
  Report Type: Spontaneous
  Country: US (occurrence: US)
  Receive Date: 20130618
  Receipt Date: 20130618
  Transmission Date: 20140414
  Serious: Yes (Hospitalization, Other)
  Sender: FDA-Public Use
  Company Number: US-PFIZER INC-2013175024

PATIENT
  Age: 46 Year
  Sex: Female

DRUGS (1)
  1. DEXTROMETHORPHAN/DEXTROMETHORPHAN HYDROBROMIDE/GUAIFENESIN [Suspect]
     Indication: DRUG WITHDRAWAL SYNDROME
     Dosage: 10 MG/100MG

REACTIONS (11)
  - Suicidal behaviour [Unknown]
  - Aggression [Unknown]
  - Acute psychosis [Recovered/Resolved]
  - Overdose [Unknown]
  - Drug abuse [Unknown]
  - Hallucination, auditory [Unknown]
  - Paranoia [Unknown]
  - Delusion [Unknown]
  - Judgement impaired [Unknown]
  - Restlessness [Unknown]
  - Anxiety [Unknown]
